FAERS Safety Report 13942875 (Version 1)
Quarter: 2017Q3

REPORT INFORMATION
  Report Type: Spontaneous
  Country: US (occurrence: US)
  Receive Date: 20170907
  Receipt Date: 20170907
  Transmission Date: 20171127
  Serious: Yes (Other)
  Sender: FDA-Public Use
  Company Number: None

PATIENT
  Age: 44 Year
  Sex: Female
  Weight: 101.25 kg

DRUGS (7)
  1. DICYLCOMEN [Concomitant]
  2. GABAPITON [Concomitant]
  3. TOPIRAMATE. [Suspect]
     Active Substance: TOPIRAMATE
     Indication: WEIGHT CONTROL
     Dosage: ?          QUANTITY:3 TABLET(S);?3 TIMES A DAY ORAL
     Route: 048
     Dates: start: 20161107, end: 20170801
  4. BUPROPRION [Concomitant]
     Active Substance: BUPROPION
  5. IBUPROPHEN [Concomitant]
     Active Substance: IBUPROFEN
  6. VITAMIN D [Concomitant]
     Active Substance: CHOLECALCIFEROL
  7. LEVOTHYOXIN [Concomitant]
     Active Substance: LEVOTHYROXINE

REACTIONS (1)
  - Cataract [None]

NARRATIVE: CASE EVENT DATE: 20170601
